FAERS Safety Report 20848490 (Version 1)
Quarter: 2022Q2

REPORT INFORMATION
  Report Type: Spontaneous
  Country: IT (occurrence: IT)
  Receive Date: 20220519
  Receipt Date: 20220519
  Transmission Date: 20220721
  Serious: Yes (Other)
  Sender: FDA-Public Use
  Company Number: IT-MYLANLABS-2022M1036267

PATIENT
  Age: 56 Year
  Sex: Female

DRUGS (5)
  1. ZOLPIDEM TARTRATE [Suspect]
     Active Substance: ZOLPIDEM TARTRATE
     Indication: Insomnia
     Dosage: 5 MILLIGRAM, QD
  2. ZOLPIDEM TARTRATE [Suspect]
     Active Substance: ZOLPIDEM TARTRATE
     Dosage: 30 MILLIGRAM
     Route: 048
  3. ZOLPIDEM TARTRATE [Suspect]
     Active Substance: ZOLPIDEM TARTRATE
     Dosage: 5 MILLIGRAM, QD (12/05 THE DOSE IS REDUCED)
  4. LITHIUM SULFATE [Suspect]
     Active Substance: LITHIUM SULFATE
     Indication: Bipolar disorder
     Dosage: 124.5 MILLIGRAM
     Route: 048
  5. VENLAFAXINE HYDROCHLORIDE [Concomitant]
     Active Substance: VENLAFAXINE HYDROCHLORIDE
     Indication: Product used for unknown indication
     Dosage: 37.5 MILLIGRAM
     Route: 048

REACTIONS (3)
  - Drug dependence [Unknown]
  - Drug abuse [Unknown]
  - Discontinued product administered [Unknown]

NARRATIVE: CASE EVENT DATE: 20220511
